FAERS Safety Report 22036518 (Version 1)
Quarter: 2023Q1

REPORT INFORMATION
  Report Type: Spontaneous
  Country: US (occurrence: US)
  Receive Date: 20230225
  Receipt Date: 20230225
  Transmission Date: 20230417
  Serious: Yes (Other)
  Sender: FDA-Public Use
  Company Number: US-Shilpa Medicare Limited-SML-US-2023-00215

PATIENT
  Age: 12 Year
  Sex: Male

DRUGS (6)
  1. BUSULFAN [Suspect]
     Active Substance: BUSULFAN
     Indication: Bone marrow conditioning regimen
  2. CYCLOPHOSPHAMIDE [Suspect]
     Active Substance: CYCLOPHOSPHAMIDE
     Indication: Bone marrow conditioning regimen
  3. TACROLIMUS [Suspect]
     Active Substance: TACROLIMUS
     Indication: Prophylaxis against graft versus host disease
  4. METHOTREXATE [Suspect]
     Active Substance: METHOTREXATE
     Indication: Prophylaxis against graft versus host disease
     Dosage: ON DAYS 1, 3, 6 AND 11
  5. RUXOLITINIB [Suspect]
     Active Substance: RUXOLITINIB
     Indication: Prophylaxis against graft versus host disease
  6. VALGANCICLOVIR [Suspect]
     Active Substance: VALGANCICLOVIR
     Indication: Prophylaxis against graft versus host disease

REACTIONS (10)
  - Cytomegalovirus infection [Recovered/Resolved]
  - Graft versus host disease [Recovered/Resolved]
  - Photophobia [Unknown]
  - Conjunctivitis [Unknown]
  - Stomatitis [Unknown]
  - Graft versus host disease in lung [Unknown]
  - Cough [Unknown]
  - Dyspnoea [Unknown]
  - Bronchiectasis [Unknown]
  - Exercise tolerance decreased [Unknown]
